FAERS Safety Report 6668402-0 (Version None)
Quarter: 2010Q2

REPORT INFORMATION
  Report Type: 
  Country: None (occurrence: None)
  Receive Date: 20100406
  Receipt Date: 20100323
  Transmission Date: 20101027
  Serious: Yes (Other)
  Sender: FDA-Public Use
  Company Number: PHHY2010JP18429

PATIENT
  Sex: Male
  Weight: 65 kg

DRUGS (8)
  1. ICL670A ICL+DISTAB [Suspect]
     Indication: IRON OVERLOAD
     Dosage: 1500 MG DAILY
     Route: 048
     Dates: start: 20081225, end: 20090625
  2. ICL670A ICL+DISTAB [Suspect]
     Dosage: 500 MG DAILY
     Route: 048
     Dates: start: 20090115, end: 20090429
  3. ICL670A ICL+DISTAB [Suspect]
     Dosage: 1000 MG DAILY
     Route: 048
     Dates: start: 20090430, end: 20090510
  4. ICL670A ICL+DISTAB [Suspect]
     Dosage: 1500MG DAILY
     Route: 048
     Dates: start: 20090511, end: 20090624
  5. ICL670A ICL+DISTAB [Suspect]
     Dosage: 1000 MG DAILY
     Route: 048
     Dates: start: 20090625, end: 20090625
  6. URALYT [Concomitant]
     Dosage: 2 DF
     Route: 048
     Dates: start: 20081225, end: 20090625
  7. BEZATOL [Concomitant]
     Dosage: 400 MG
     Route: 048
     Dates: start: 20081225, end: 20090625
  8. URINORM [Concomitant]
     Dosage: 50 MG
     Route: 048
     Dates: start: 20081225, end: 20090625

REACTIONS (2)
  - ANAEMIA [None]
  - HEPATIC FUNCTION ABNORMAL [None]
